FAERS Safety Report 5309679-3 (Version None)
Quarter: 2007Q2

REPORT INFORMATION
  Report Type: 
  Country: None (occurrence: None)
  Receive Date: 20070427
  Receipt Date: 20061114
  Transmission Date: 20071010
  Serious: No
  Sender: FDA-Public Use
  Company Number: US-GLAXOSMITHKLINE-A0627506A

PATIENT
  Sex: Female

DRUGS (4)
  1. DEXEDRINE [Suspect]
     Indication: DEPRESSION
     Route: 048
  2. DEXEDRINE [Suspect]
  3. LIPITOR [Concomitant]
  4. REMERON [Concomitant]

REACTIONS (1)
  - APATHY [None]
